FAERS Safety Report 17874552 (Version 2)
Quarter: 2020Q2

REPORT INFORMATION
  Report Type: Spontaneous
  Country: US (occurrence: US)
  Receive Date: 20200609
  Receipt Date: 20200622
  Transmission Date: 20200714
  Serious: No
  Sender: FDA-Public Use
  Company Number: US-MYLANLABS-2020M1053193

PATIENT
  Sex: Female

DRUGS (1)
  1. FEBUXOSTAT TABLETS [Suspect]
     Active Substance: FEBUXOSTAT
     Indication: HYPERURICAEMIA
     Dosage: UNK (ON UNKNOWN DATE SHE TOOK ONLY ONE PILL IN JANUARY)
     Route: 048

REACTIONS (1)
  - Palpitations [Not Recovered/Not Resolved]
